FAERS Safety Report 5716755-X (Version None)
Quarter: 2008Q2

REPORT INFORMATION
  Report Type: 
  Country: None (occurrence: None)
  Receive Date: 20080424
  Receipt Date: 20070606
  Transmission Date: 20081010
  Serious: No
  Sender: FDA-Public Use
  Company Number: US-BAYER-200711738BWH

PATIENT
  Age: 68 Year
  Sex: Male

DRUGS (3)
  1. LEVITRA [Suspect]
     Indication: ERECTILE DYSFUNCTION
     Dosage: TOTAL DAILY DOSE: 10 MG  UNIT DOSE: 10 MG
     Route: 048
     Dates: start: 20070101
  2. SINEMET [Concomitant]
     Indication: PARKINSON'S DISEASE
  3. MIRAPAX [Concomitant]

REACTIONS (1)
  - ERECTILE DYSFUNCTION [None]
